FAERS Safety Report 9378155 (Version 3)
Quarter: 2013Q3

REPORT INFORMATION
  Report Type: Report from Study
  Country: US (occurrence: US)
  Receive Date: 20130701
  Receipt Date: 20130909
  Transmission Date: 20140515
  Serious: Yes (Life-Threatening, Hospitalization)
  Sender: FDA-Public Use
  Company Number: US-GLAXOSMITHKLINE-B0902649A

PATIENT
  Age: 69 Year
  Sex: Male
  Weight: 88.9 kg

DRUGS (24)
  1. COREG [Suspect]
     Indication: HYPERTENSION
     Dosage: 12.5MG TWICE PER DAY
     Route: 048
     Dates: start: 20130516, end: 20130620
  2. FLUTICASONE FUROATE [Suspect]
     Indication: CHRONIC OBSTRUCTIVE PULMONARY DISEASE
  3. BLINDED FLUTICASONE FUROATE + VILANTEROL TRIFENATATE [Suspect]
     Indication: CHRONIC OBSTRUCTIVE PULMONARY DISEASE
  4. BLINDED NO THERAPY [Suspect]
     Indication: CHRONIC OBSTRUCTIVE PULMONARY DISEASE
  5. BLINDED PLACEBO [Suspect]
     Indication: CHRONIC OBSTRUCTIVE PULMONARY DISEASE
  6. BLINDED TRIAL MEDICATION [Suspect]
     Indication: CHRONIC OBSTRUCTIVE PULMONARY DISEASE
  7. BLINDED VILANTEROL TRIFENATATE [Suspect]
     Indication: CHRONIC OBSTRUCTIVE PULMONARY DISEASE
  8. NITROGLYCERIN [Concomitant]
     Indication: CHEST PAIN
     Route: 060
     Dates: start: 200906
  9. NOVOLOG MIX [Concomitant]
     Indication: DIABETES MELLITUS
     Route: 058
     Dates: start: 20120809, end: 20130620
  10. NOVOLOG [Concomitant]
     Indication: DIABETES MELLITUS
     Route: 058
     Dates: start: 20121112, end: 20130620
  11. PRADAXA [Concomitant]
     Indication: ANTICOAGULANT THERAPY
     Route: 048
     Dates: start: 20120611
  12. DILTIAZEM HCL [Concomitant]
     Indication: ATRIAL FIBRILLATION
     Dosage: 180MG PER DAY
     Route: 048
     Dates: start: 20130226, end: 20130620
  13. LIPITOR [Concomitant]
     Indication: BLOOD CHOLESTEROL
     Dosage: 80MG PER DAY
     Route: 048
     Dates: start: 200906
  14. LISINOPRIL [Concomitant]
     Indication: HYPERTENSION
     Dosage: 20MG PER DAY
     Route: 048
     Dates: start: 200906, end: 20130620
  15. PLAVIX [Concomitant]
     Indication: ANTICOAGULANT THERAPY
     Dosage: 75MG PER DAY
     Route: 048
  16. ASPIRIN [Concomitant]
     Indication: CARDIOVASCULAR EVENT PROPHYLAXIS
     Dosage: 325MG PER DAY
     Route: 048
     Dates: start: 200906
  17. NOVOLOG MIX [Concomitant]
     Indication: DIABETES MELLITUS
     Route: 058
     Dates: start: 20130620, end: 20130624
  18. ONDANSETRON [Concomitant]
     Indication: NAUSEA
     Route: 042
     Dates: start: 20130620, end: 20130624
  19. FAMOTIDINE [Concomitant]
     Indication: PROPHYLAXIS
     Dosage: 20MG PER DAY
     Route: 042
     Dates: start: 20130620, end: 20130624
  20. HEPARIN [Concomitant]
     Indication: PROPHYLAXIS
     Route: 058
     Dates: start: 20130620, end: 20130624
  21. DOCUSATE SODIUM [Concomitant]
     Indication: PROPHYLAXIS
     Dosage: 200MG PER DAY
     Route: 048
     Dates: start: 20130620, end: 20130624
  22. ALBUTEROL SULFATE [Concomitant]
     Indication: CHRONIC OBSTRUCTIVE PULMONARY DISEASE
     Route: 055
     Dates: start: 20130620, end: 20130624
  23. TYLENOL [Concomitant]
     Indication: PAIN
     Route: 048
     Dates: start: 20130620, end: 20130624
  24. COREG CR [Concomitant]
     Indication: HYPERTENSION
     Dosage: 10MG PER DAY
     Route: 048
     Dates: start: 20120612, end: 20130515

REACTIONS (2)
  - Bradycardia [Recovered/Resolved]
  - Hypotension [Recovered/Resolved]
